FAERS Safety Report 5008112-9 (Version None)
Quarter: 2006Q2

REPORT INFORMATION
  Report Type: 
  Country: None (occurrence: None)
  Receive Date: 20060404
  Receipt Date: 20050915
  Transmission Date: 20061013
  Serious: Yes (Other)
  Sender: FDA-Public Use
  Company Number: 2005102973

PATIENT
  Age: 15 Year
  Sex: Male

DRUGS (1)
  1. GEODON [Suspect]
     Indication: MOOD ALTERED
     Dosage: 20 MG, UNKNOWN), ORAL
     Route: 048
     Dates: start: 20050617, end: 20050618

REACTIONS (3)
  - DYSPNOEA [None]
  - DYSTONIA [None]
  - EXTRAPYRAMIDAL DISORDER [None]
